FAERS Safety Report 11194881 (Version 2)
Quarter: 2015Q3

REPORT INFORMATION
  Report Type: Spontaneous
  Country: IT (occurrence: IT)
  Receive Date: 20150617
  Receipt Date: 20150702
  Transmission Date: 20151125
  Serious: Yes (Other)
  Sender: FDA-Public Use
  Company Number: IT-ROCHE-1595097

PATIENT
  Age: 68 Year
  Sex: Female

DRUGS (1)
  1. MABTHERA [Suspect]
     Active Substance: RITUXIMAB
     Indication: HODGKIN^S DISEASE
     Dosage: 1 X 500 MG 50 ML VIAL
     Route: 042
     Dates: start: 20150527, end: 20150527

REACTIONS (4)
  - Hypotension [Recovering/Resolving]
  - Flushing [Recovering/Resolving]
  - Apnoea [Recovering/Resolving]
  - Sedation [Recovering/Resolving]

NARRATIVE: CASE EVENT DATE: 20150527
